FAERS Safety Report 9344607 (Version 9)
Quarter: 2016Q1

REPORT INFORMATION
  Report Type: Report from Study
  Country: US (occurrence: US)
  Receive Date: 20130612
  Receipt Date: 20160113
  Transmission Date: 20160526
  Serious: Yes (Hospitalization, Other)
  Sender: FDA-Public Use
  Company Number: US-ACTELION-A-US2013-84139

PATIENT
  Age: 69 Year
  Sex: Male

DRUGS (4)
  1. TRACLEER [Suspect]
     Active Substance: BOSENTAN
     Dosage: UNK
     Route: 048
     Dates: start: 20090522
  2. COUMADIN [Concomitant]
     Active Substance: WARFARIN SODIUM
  3. SILDENAFIL. [Concomitant]
     Active Substance: SILDENAFIL
  4. TRACLEER [Suspect]
     Active Substance: BOSENTAN
     Indication: PULMONARY ARTERIAL HYPERTENSION
     Dosage: 125 MG, UNK
     Route: 048

REACTIONS (11)
  - Fistula repair [Recovered/Resolved]
  - Dyspnoea [Unknown]
  - Cardiac pacemaker insertion [Unknown]
  - Staphylococcal infection [Unknown]
  - Arteriovenous fistula operation [Unknown]
  - Stent placement [Unknown]
  - Myocardial infarction [Unknown]
  - Stent malfunction [Unknown]
  - Cardiac disorder [Unknown]
  - Blood pressure decreased [Unknown]
  - Dialysis [Unknown]

NARRATIVE: CASE EVENT DATE: 2011
